FAERS Safety Report 6632225-9 (Version None)
Quarter: 2010Q1

REPORT INFORMATION
  Report Type: 
  Country: None (occurrence: None)
  Receive Date: 20100312
  Receipt Date: 20100303
  Transmission Date: 20100710
  Serious: Yes (Other)
  Sender: FDA-Public Use
  Company Number: GXKR2010GB02596

PATIENT
  Age: 81 Year
  Sex: Male

DRUGS (16)
  1. MIRTAZAPINE [Suspect]
     Indication: DEPRESSION
     Dosage: 15 MG, QD
     Route: 048
     Dates: start: 20100201, end: 20100215
  2. ACETYLSALICYLIC ACID [Concomitant]
  3. ATENOLOL [Concomitant]
  4. BRINZOLAMIDE [Concomitant]
  5. FEXOFENADINE [Concomitant]
  6. FUROSEMIDE [Concomitant]
  7. GAVISCON /OLD FORM/ [Concomitant]
  8. LATANOPROST [Concomitant]
  9. LEVOTHYROXINE SODIUM [Concomitant]
  10. LOSARTAN POTASSIUM [Concomitant]
  11. OMEPRAZOLE [Concomitant]
  12. PARACETAMOL [Concomitant]
  13. PILOCARPINE HYDROCHLORIDE [Concomitant]
  14. SENNA [Concomitant]
  15. SPIRONOLACTONE [Concomitant]
  16. TIMOLOL MALEATE [Concomitant]

REACTIONS (3)
  - CARDIAC FAILURE CHRONIC [None]
  - DYSPNOEA [None]
  - GENERALISED OEDEMA [None]
